FAERS Safety Report 6215033-2 (Version None)
Quarter: 2009Q2

REPORT INFORMATION
  Report Type: 
  Country: None (occurrence: None)
  Receive Date: 20090604
  Receipt Date: 20081114
  Transmission Date: 20091009
  Serious: No
  Sender: FDA-Public Use
  Company Number: US-ASTRAZENECA-2008UW25529

PATIENT
  Sex: Female

DRUGS (2)
  1. PRILOSEC [Suspect]
     Dosage: UNKNOWN
     Route: 048
     Dates: end: 20080901
  2. ALTERNATIVE SUPPLEMENTS [Concomitant]

REACTIONS (4)
  - DYSPHAGIA [None]
  - ERUCTATION [None]
  - GASTRIC ULCER [None]
  - GASTROINTESTINAL PAIN [None]
